FAERS Safety Report 9638345 (Version 1)
Quarter: 2013Q4

REPORT INFORMATION
  Report Type: Spontaneous
  Country: US (occurrence: US)
  Receive Date: 20131022
  Receipt Date: 20131022
  Transmission Date: 20140711
  Serious: No
  Sender: FDA-Public Use
  Company Number: US-MYLANLABS-2013S1018432

PATIENT
  Age: 66 Year
  Sex: Male
  Weight: 70.31 kg

DRUGS (2)
  1. MIDODRINE HYDROCHLORIDE TABLETS [Suspect]
     Indication: HYPOTENSION
     Route: 048
     Dates: start: 201301
  2. VITAMINS [Concomitant]
     Route: 048

REACTIONS (1)
  - Urticaria [Not Recovered/Not Resolved]
